FAERS Safety Report 13842727 (Version 1)
Quarter: 2017Q3

REPORT INFORMATION
  Report Type: Spontaneous
  Country: SG (occurrence: SG)
  Receive Date: 20170808
  Receipt Date: 20170808
  Transmission Date: 20171127
  Serious: Yes (Other)
  Sender: FDA-Public Use
  Company Number: SG-ACCORD-056643

PATIENT
  Age: 8 Year
  Sex: Female

DRUGS (1)
  1. TACROLIMUS. [Suspect]
     Active Substance: TACROLIMUS
     Indication: VITILIGO
     Dosage: STRENGTH: 0.1% (ONCE TO TWICE DAILY)
     Route: 061

REACTIONS (1)
  - Lentigo [Recovered/Resolved]
